FAERS Safety Report 5672901-8 (Version None)
Quarter: 2008Q1

REPORT INFORMATION
  Report Type: 
  Country: None (occurrence: None)
  Receive Date: 20080317
  Receipt Date: 20080303
  Transmission Date: 20080703
  Serious: Yes (Hospitalization)
  Sender: FDA-Public Use
  Company Number: 2008BI002198

PATIENT
  Age: 55 Year
  Sex: Female

DRUGS (17)
  1. AVONEX [Suspect]
     Indication: MULTIPLE SCLEROSIS
     Dosage: 30 UG;QW;IM
     Route: 030
     Dates: start: 20010501
  2. STRATTERA [Concomitant]
  3. PILOCARPINE [Concomitant]
  4. PROTONIX [Concomitant]
  5. FOSAMAX [Concomitant]
  6. NAPROXEN [Concomitant]
  7. AMANTADINE HCL [Concomitant]
  8. LISINOPRIL [Concomitant]
  9. AMITRIPTYLINE HCL [Concomitant]
  10. ALPRAZOLAM [Concomitant]
  11. FLUCONAZOLE [Concomitant]
  12. GABAPENTIN [Concomitant]
  13. METHADON HCL TAB [Concomitant]
  14. PROZAC [Concomitant]
  15. NORVASC [Concomitant]
  16. SENOKOT [Concomitant]
  17. NIASPAN [Concomitant]

REACTIONS (13)
  - BACK PAIN [None]
  - BASAL GANGLIA HAEMORRHAGE [None]
  - CEREBRAL INFARCTION [None]
  - DEEP VEIN THROMBOSIS [None]
  - DRUG INTERACTION [None]
  - HAEMORRHAGIC STROKE [None]
  - HYPERCOAGULATION [None]
  - HYPERTENSION [None]
  - ILIAC ARTERY STENOSIS [None]
  - LIPOPROTEIN (A) INCREASED [None]
  - PARADOXICAL EMBOLISM [None]
  - SKIN ULCER [None]
  - TURNER'S SYNDROME [None]
